FAERS Safety Report 25364869 (Version 1)
Quarter: 2025Q2

REPORT INFORMATION
  Report Type: Spontaneous
  Country: US (occurrence: US)
  Receive Date: 20250527
  Receipt Date: 20250527
  Transmission Date: 20250717
  Serious: No
  Sender: INSUD PHARMA
  Company Number: US-INSUD PHARMA-2505US03808

PATIENT

DRUGS (2)
  1. ENILLORING [Suspect]
     Active Substance: ETHINYL ESTRADIOL\ETONOGESTREL
     Indication: Menstrual cycle management
     Route: 067
     Dates: start: 2025, end: 20250512
  2. ENILLORING [Suspect]
     Active Substance: ETHINYL ESTRADIOL\ETONOGESTREL
     Route: 067
     Dates: start: 2025, end: 2025

REACTIONS (5)
  - Vulvovaginal burning sensation [Recovered/Resolved]
  - Vulvovaginal pruritus [Recovered/Resolved]
  - Vaginal discharge [Recovered/Resolved]
  - Hypersensitivity [Recovered/Resolved]
  - Product substitution issue [Unknown]

NARRATIVE: CASE EVENT DATE: 20250401
